FAERS Safety Report 18299251 (Version 2)
Quarter: 2020Q4

REPORT INFORMATION
  Report Type: Spontaneous
  Country: US (occurrence: US)
  Receive Date: 20200923
  Receipt Date: 20201116
  Transmission Date: 20210113
  Serious: Yes (Hospitalization)
  Sender: FDA-Public Use
  Company Number: US-GLOBAL BLOOD THERAPEUTICS INC-US-GBT-20-02737

PATIENT
  Sex: Male

DRUGS (1)
  1. OXBRYTA [Suspect]
     Active Substance: VOXELOTOR
     Indication: SICKLE CELL ANAEMIA WITH CRISIS
     Route: 048
     Dates: start: 20200818, end: 2020

REACTIONS (5)
  - Pneumonia [Unknown]
  - Headache [Unknown]
  - Product use complaint [Unknown]
  - Vomiting [Unknown]
  - Therapy interrupted [Unknown]

NARRATIVE: CASE EVENT DATE: 2020
